FAERS Safety Report 15201824 (Version 1)
Quarter: 2018Q3

REPORT INFORMATION
  Report Type: Spontaneous
  Country: DE (occurrence: US)
  Receive Date: 20180726
  Receipt Date: 20180726
  Transmission Date: 20181010
  Serious: No
  Sender: FDA-Public Use
  Company Number: DE-MYLANLABS-2018M1054029

PATIENT
  Age: 65 Year
  Sex: Female
  Weight: 70 kg

DRUGS (1)
  1. CARBOPLATIN. [Suspect]
     Active Substance: CARBOPLATIN
     Indication: ENDOMETRIAL CANCER
     Dosage: 197.6 MG, QD (STRENGTH: 600 MG)
     Route: 042

REACTIONS (5)
  - Chest discomfort [Recovered/Resolved]
  - Flushing [Recovering/Resolving]
  - Vomiting [Recovered/Resolved]
  - Off label use [Unknown]
  - Headache [Recovered/Resolved]

NARRATIVE: CASE EVENT DATE: 20171221
